FAERS Safety Report 20782738 (Version 1)
Quarter: 2022Q2

REPORT INFORMATION
  Report Type: Spontaneous
  Country: US (occurrence: US)
  Receive Date: 20220504
  Receipt Date: 20220504
  Transmission Date: 20220720
  Serious: Yes (Hospitalization)
  Sender: FDA-Public Use
  Company Number: US-ALEMBIC PHARMACUETICALS LIMITED-2022SCAL000152

PATIENT

DRUGS (36)
  1. LITHIUM CARBONATE [Interacting]
     Active Substance: LITHIUM CARBONATE
     Indication: Schizoaffective disorder
     Dosage: 600 MG, BID
     Route: 065
  2. LITHIUM CARBONATE [Interacting]
     Active Substance: LITHIUM CARBONATE
     Indication: Intellectual disability
     Dosage: 600 MG, QD
     Route: 065
  3. LITHIUM CARBONATE [Interacting]
     Active Substance: LITHIUM CARBONATE
     Indication: Self-injurious ideation
     Dosage: 900 MG, QD
     Route: 065
  4. LITHIUM CARBONATE [Interacting]
     Active Substance: LITHIUM CARBONATE
     Dosage: 300 MG, QD
     Route: 065
  5. LITHIUM CARBONATE [Interacting]
     Active Substance: LITHIUM CARBONATE
     Dosage: 300 MG, QD
     Route: 065
  6. LITHIUM CARBONATE [Interacting]
     Active Substance: LITHIUM CARBONATE
     Dosage: 300 MG, QD
     Route: 065
  7. LITHIUM CARBONATE [Interacting]
     Active Substance: LITHIUM CARBONATE
     Dosage: 300 MG, QD
     Route: 065
  8. LITHIUM CARBONATE [Interacting]
     Active Substance: LITHIUM CARBONATE
     Dosage: 450 MG, QD
     Route: 065
  9. LITHIUM CARBONATE [Interacting]
     Active Substance: LITHIUM CARBONATE
     Dosage: 450 MG, QD
     Route: 065
  10. LITHIUM CARBONATE [Interacting]
     Active Substance: LITHIUM CARBONATE
     Dosage: 450 MG, QD
     Route: 065
  11. LITHIUM CARBONATE [Interacting]
     Active Substance: LITHIUM CARBONATE
     Dosage: 300 MG, QD
     Route: 065
  12. LITHIUM CARBONATE [Interacting]
     Active Substance: LITHIUM CARBONATE
     Dosage: 600 MG, QD
     Route: 065
  13. LITHIUM CARBONATE [Interacting]
     Active Substance: LITHIUM CARBONATE
     Dosage: 750 MG, QD
     Route: 065
  14. LITHIUM CARBONATE [Interacting]
     Active Substance: LITHIUM CARBONATE
     Dosage: 750 MG, QD
     Route: 065
  15. LITHIUM CARBONATE [Interacting]
     Active Substance: LITHIUM CARBONATE
     Dosage: 750 MG, QD
     Route: 065
  16. LITHIUM CARBONATE [Interacting]
     Active Substance: LITHIUM CARBONATE
     Dosage: 900 MG, QD
     Route: 065
  17. LITHIUM CARBONATE [Interacting]
     Active Substance: LITHIUM CARBONATE
     Dosage: 900 MG, QD
     Route: 065
  18. LITHIUM CARBONATE [Interacting]
     Active Substance: LITHIUM CARBONATE
     Dosage: 1200 MG, QD
     Route: 065
  19. LITHIUM CARBONATE [Interacting]
     Active Substance: LITHIUM CARBONATE
     Dosage: 750 MG, QD
     Route: 065
  20. LITHIUM CARBONATE [Interacting]
     Active Substance: LITHIUM CARBONATE
     Dosage: 750 MG, QD
     Route: 065
  21. LITHIUM CARBONATE [Interacting]
     Active Substance: LITHIUM CARBONATE
     Dosage: 750 MG, QD
     Route: 065
  22. TOPIRAMATE [Interacting]
     Active Substance: TOPIRAMATE
     Indication: Schizoaffective disorder
     Dosage: 50 MG, QD NIGHTLY
  23. TOPIRAMATE [Interacting]
     Active Substance: TOPIRAMATE
     Indication: Intellectual disability
  24. TOPIRAMATE [Interacting]
     Active Substance: TOPIRAMATE
     Indication: Self-injurious ideation
  25. QUETIAPINE FUMARATE [Concomitant]
     Active Substance: QUETIAPINE FUMARATE
     Indication: Schizoaffective disorder
     Dosage: 400 MG, BID
     Route: 065
  26. QUETIAPINE FUMARATE [Concomitant]
     Active Substance: QUETIAPINE FUMARATE
     Indication: Intellectual disability
  27. QUETIAPINE FUMARATE [Concomitant]
     Active Substance: QUETIAPINE FUMARATE
     Indication: Self-injurious ideation
  28. CLONAZEPAM [Concomitant]
     Active Substance: CLONAZEPAM
     Indication: Schizoaffective disorder
     Dosage: 1 MG, BID
     Route: 065
  29. CLONAZEPAM [Concomitant]
     Active Substance: CLONAZEPAM
     Indication: Intellectual disability
  30. CLONAZEPAM [Concomitant]
     Active Substance: CLONAZEPAM
     Indication: Self-injurious ideation
  31. PANTOPRAZOLE [Concomitant]
     Active Substance: PANTOPRAZOLE
     Indication: Product used for unknown indication
     Dosage: 40 MG, QD
     Route: 065
  32. LEVOTHYROXINE [Concomitant]
     Active Substance: LEVOTHYROXINE
     Indication: Hypothyroidism
     Dosage: 12.5 MICROGRAM, QD
     Route: 065
  33. MONTELUKAST [Concomitant]
     Active Substance: MONTELUKAST SODIUM
     Indication: Asthma
     Dosage: 10 MG, QD
     Route: 065
  34. VALPROIC ACID [Concomitant]
     Active Substance: VALPROIC ACID
     Indication: Schizoaffective disorder
     Dosage: 250 MG, BID
     Route: 065
  35. VALPROIC ACID [Concomitant]
     Active Substance: VALPROIC ACID
     Indication: Intellectual disability
  36. VALPROIC ACID [Concomitant]
     Active Substance: VALPROIC ACID
     Indication: Self-injurious ideation

REACTIONS (2)
  - Drug level above therapeutic [Unknown]
  - Drug interaction [Unknown]
